FAERS Safety Report 8859993 (Version 1)
Quarter: 2012Q4

REPORT INFORMATION
  Report Type: 
  Country: JP (occurrence: JP)
  Receive Date: 20121025
  Receipt Date: 20121025
  Transmission Date: 20130627
  Serious: Yes (Other)
  Sender: FDA-Public Use
  Company Number: JP-PFIZER INC-2012259459

PATIENT
  Age: 61 Year
  Sex: Male

DRUGS (1)
  1. AZULFIDINE EN [Suspect]
     Dosage: UNK
     Dates: start: 200911, end: 200912

REACTIONS (2)
  - Agranulocytosis [Unknown]
  - Drug eruption [Unknown]
